FAERS Safety Report 12886072 (Version 1)
Quarter: 2016Q4

REPORT INFORMATION
  Report Type: Spontaneous
  Country: US (occurrence: US)
  Receive Date: 20161026
  Receipt Date: 20161026
  Transmission Date: 20170207
  Serious: No
  Sender: FDA-Public Use
  Company Number: US-TARO-2016TAR00119

PATIENT
  Age: 71 Year
  Sex: Male
  Weight: 88.44 kg

DRUGS (1)
  1. MUPIROCIN OINTMENT USP 2% [Suspect]
     Active Substance: MUPIROCIN
     Indication: INFECTION PROPHYLAXIS
     Dosage: WITH 5 ML NASAL RINSE WITH SALT WATER, 2X/DAY
     Route: 045
     Dates: start: 20160129

REACTIONS (4)
  - Nasal discomfort [Recovered/Resolved]
  - Off label use [Not Recovered/Not Resolved]
  - Nasal dryness [Recovered/Resolved]
  - Incorrect route of drug administration [Not Recovered/Not Resolved]

NARRATIVE: CASE EVENT DATE: 20160129
